FAERS Safety Report 7435372-7 (Version None)
Quarter: 2011Q2

REPORT INFORMATION
  Report Type: 
  Country: None (occurrence: None)
  Receive Date: 20110415
  Receipt Date: 20110406
  Transmission Date: 20111010
  Serious: Yes (Hospitalization, Other)
  Sender: FDA-Public Use
  Company Number: 2011SP015515

PATIENT
  Age: 48 Year
  Sex: Male

DRUGS (10)
  1. TERCIAN (CYAMEMAZINE) [Suspect]
     Indication: PRODUCT USED FOR UNKNOWN INDICATION
     Dosage: 50 MG;QD;PO
     Route: 048
     Dates: start: 20100808
  2. SOLIAN (AMISULPRIDE) [Suspect]
     Indication: PRODUCT USED FOR UNKNOWN INDICATION
     Dosage: 200 MG;QD;PO
     Route: 048
     Dates: start: 20100720
  3. REVIA [Concomitant]
  4. EFFEXOR [Suspect]
     Indication: PRODUCT USED FOR UNKNOWN INDICATION
     Dosage: 75 MG;QD;PO
     Route: 048
     Dates: start: 20100610
  5. XANAX [Concomitant]
  6. DOGMATIL (SULPIRIDE) [Suspect]
     Indication: PRODUCT USED FOR UNKNOWN INDICATION
     Dosage: 200 MG;QD;PO
     Route: 048
     Dates: start: 20100610, end: 20100719
  7. VALIUM [Concomitant]
  8. MIRTAZAPINE [Suspect]
     Indication: PRODUCT USED FOR UNKNOWN INDICATION
     Dosage: 15 MG;QD;PO
     Route: 048
     Dates: start: 20100806
  9. MEPRONIZINE [Suspect]
     Indication: PRODUCT USED FOR UNKNOWN INDICATION
     Dosage: 1 DF;QD;PO
     Route: 048
     Dates: start: 20100528
  10. ATARAX [Concomitant]

REACTIONS (4)
  - DIABETES INSIPIDUS [None]
  - WEIGHT INCREASED [None]
  - BLOOD TRIGLYCERIDES INCREASED [None]
  - POLYDIPSIA [None]
